FAERS Safety Report 25702652 (Version 1)
Quarter: 2025Q3

REPORT INFORMATION
  Report Type: Spontaneous
  Country: US (occurrence: US)
  Receive Date: 20250819
  Receipt Date: 20250819
  Transmission Date: 20251020
  Serious: No
  Sender: REGENERON
  Company Number: US-REGENERON PHARMACEUTICALS, INC.-2025-089988

PATIENT
  Sex: Male

DRUGS (1)
  1. PRALUENT [Suspect]
     Active Substance: ALIROCUMAB
     Indication: Blood cholesterol increased
     Dosage: 75 MG, Q2W (EVERY 2 WEEKS), STRENGTH: 75 MG/ML
     Route: 065

REACTIONS (1)
  - Product preparation error [Recovered/Resolved]

NARRATIVE: CASE EVENT DATE: 20250601
